FAERS Safety Report 12412878 (Version 2)
Quarter: 2016Q2

REPORT INFORMATION
  Report Type: Spontaneous
  Country: US (occurrence: US)
  Receive Date: 20160527
  Receipt Date: 20160601
  Transmission Date: 20160815
  Serious: Yes (Other)
  Sender: FDA-Public Use
  Company Number: US-PFIZER INC-2016277041

PATIENT
  Age: 47 Year
  Sex: Female
  Weight: 70 kg

DRUGS (6)
  1. SYNTHROID [Concomitant]
     Active Substance: LEVOTHYROXINE SODIUM
     Indication: SJOGREN^S SYNDROME
  2. PREMARIN [Suspect]
     Active Substance: ESTROGENS, CONJUGATED
     Indication: DYSPAREUNIA
     Dosage: UNK UNK, 2X/WEEK
     Route: 067
     Dates: start: 2013, end: 201604
  3. SYNTHROID [Concomitant]
     Active Substance: LEVOTHYROXINE SODIUM
     Indication: AUTOIMMUNE THYROIDITIS
     Dosage: 175 UG, DAILY
     Route: 048
     Dates: start: 2005
  4. CALCIUM + VIT D [Concomitant]
     Active Substance: CALCIUM\VITAMIN D
     Indication: BLOOD CALCIUM DECREASED
     Dosage: 1 DF, 1X/DAY
     Route: 048
  5. ASPIRIN (E.C.) [Concomitant]
     Active Substance: ASPIRIN
     Indication: ANTICOAGULANT THERAPY
     Dosage: 81 MG, 1X/DAY
     Route: 048
     Dates: start: 2005
  6. CENTRUM [Concomitant]
     Active Substance: VITAMINS
     Dosage: UNK, 1X/DAY
     Route: 048

REACTIONS (6)
  - Autoimmune disorder [Recovered/Resolved]
  - Condition aggravated [Unknown]
  - Blood calcium decreased [Unknown]
  - Wrong technique in product usage process [Unknown]
  - Urinary tract infection bacterial [Recovered/Resolved]
  - Albumin urine [Not Recovered/Not Resolved]

NARRATIVE: CASE EVENT DATE: 20160210
